FAERS Safety Report 5415203-7 (Version None)
Quarter: 2007Q3

REPORT INFORMATION
  Report Type: 
  Country: None (occurrence: None)
  Receive Date: 20070815
  Receipt Date: 20070814
  Transmission Date: 20080115
  Serious: Yes (Death, Hospitalization)
  Sender: FDA-Public Use
  Company Number: GB-BRISTOL-MYERS SQUIBB COMPANY-13304910

PATIENT
  Age: 60 Year
  Sex: Male

DRUGS (26)
  1. CISPLATIN [Suspect]
     Indication: GASTRIC CANCER
     Route: 041
     Dates: start: 20060113, end: 20060113
  2. FLUOROURACIL [Suspect]
     Indication: GASTRIC CANCER
     Route: 042
     Dates: start: 20060113, end: 20060118
  3. INFUMORPH [Concomitant]
     Indication: CANCER PAIN
     Route: 048
     Dates: start: 20060101, end: 20060221
  4. GLICLAZIDE [Concomitant]
     Indication: DIABETES MELLITUS
     Route: 048
     Dates: start: 20060221, end: 20060227
  5. METFORMIN HCL [Concomitant]
     Indication: DIABETES MELLITUS
     Route: 048
  6. CO-DANTHRUSATE [Concomitant]
     Indication: CONSTIPATION
     Route: 048
     Dates: start: 20060103
  7. DOMPERIDONE [Concomitant]
     Indication: PROPHYLAXIS OF NAUSEA AND VOMITING
     Route: 048
     Dates: start: 20060101, end: 20060220
  8. ORAMORPH SR [Concomitant]
     Indication: CANCER PAIN
     Dates: start: 20060120, end: 20060207
  9. DIFFLAM [Concomitant]
     Indication: STOMATITIS
     Route: 048
     Dates: start: 20060120, end: 20060207
  10. FORTISIP [Concomitant]
     Indication: MEDICAL DIET
     Dates: start: 20060113, end: 20060222
  11. MUCAINE [Concomitant]
     Indication: STOMATITIS
     Dates: start: 20060117, end: 20060207
  12. SANDO-K [Concomitant]
     Indication: BLOOD POTASSIUM DECREASED
     Dates: start: 20060203, end: 20060206
  13. GAVISCON [Concomitant]
     Indication: ABDOMINAL PAIN
     Dates: start: 20051101
  14. SLOW-K [Concomitant]
     Indication: HYPOKALAEMIA
     Dates: start: 20060207, end: 20060210
  15. SODIUM BICARBONATE [Concomitant]
     Indication: CERUMEN IMPACTION
     Route: 001
     Dates: start: 20060210, end: 20060217
  16. MORPHINE [Concomitant]
     Indication: CANCER PAIN
     Dates: start: 20060219, end: 20060226
  17. METOCLOPRAMIDE [Concomitant]
     Indication: PROPHYLAXIS OF NAUSEA AND VOMITING
     Dates: start: 20060219, end: 20060227
  18. OMEPRAZOLE [Concomitant]
     Indication: HAEMATEMESIS
     Dates: start: 20060219, end: 20060227
  19. GLICLAZIDE [Concomitant]
  20. SALBUTAMOL [Concomitant]
     Indication: DYSPNOEA
     Dates: start: 20060223, end: 20060227
  21. GELOFUSINE [Concomitant]
     Indication: HYPOTENSION
     Dates: start: 20060227, end: 20060227
  22. FUROSEMIDE [Concomitant]
     Indication: PROPHYLAXIS
     Dates: start: 20060221, end: 20060221
  23. WHOLE BLOOD [Concomitant]
     Indication: ANAEMIA
     Dates: start: 20060221, end: 20060221
  24. SODIUM CHLORIDE [Concomitant]
     Indication: HYPOTENSION
     Dates: start: 20060221, end: 20060227
  25. DEXTROSE 50% [Concomitant]
     Indication: HYPOGLYCAEMIA
     Dates: start: 20060224, end: 20060224
  26. SODIUM PHOSPHATES [Concomitant]
     Indication: CONSTIPATION
     Route: 054
     Dates: start: 20060208, end: 20060208

REACTIONS (11)
  - BILIARY SEPSIS [None]
  - BLOOD CREATININE DECREASED [None]
  - BLOOD SODIUM DECREASED [None]
  - BLOOD UREA INCREASED [None]
  - CHOLANGITIS [None]
  - ELECTROCARDIOGRAM T WAVE ABNORMAL [None]
  - LUNG INFECTION [None]
  - MALIGNANT NEOPLASM PROGRESSION [None]
  - METASTASES TO LIVER [None]
  - UPPER GASTROINTESTINAL HAEMORRHAGE [None]
  - URINE OUTPUT DECREASED [None]
